FAERS Safety Report 6315973-X (Version None)
Quarter: 2009Q3

REPORT INFORMATION
  Report Type: 
  Country: None (occurrence: None)
  Receive Date: 20090819
  Receipt Date: 20090819
  Transmission Date: 20100115
  Serious: No
  Sender: FDA-Public Use
  Company Number: None

PATIENT
  Age: 76 Year
  Sex: Female
  Weight: 72.5755 kg

DRUGS (5)
  1. COSOPT [Suspect]
     Indication: GLAUCOMA
     Dosage: BID TOPICAL
     Route: 061
     Dates: start: 20090413, end: 20090717
  2. GLYBURIDE [Concomitant]
  3. VERAPAMIL [Concomitant]
  4. PHENOBARBITAL [Concomitant]
  5. LUMIGAN [Concomitant]

REACTIONS (4)
  - EYE PAIN [None]
  - INTRAOCULAR PRESSURE INCREASED [None]
  - PRODUCT SUBSTITUTION ISSUE [None]
  - VISION BLURRED [None]
